FAERS Safety Report 11003195 (Version 1)
Quarter: 2015Q2

REPORT INFORMATION
  Report Type: Spontaneous
  Country: JP (occurrence: JP)
  Receive Date: 20150409
  Receipt Date: 20150409
  Transmission Date: 20150821
  Serious: Yes (Death, Other)
  Sender: FDA-Public Use
  Company Number: JP-CIPLA LTD.-2015JP02815

PATIENT

DRUGS (5)
  1. AMRUBICIN [Suspect]
     Active Substance: AMRUBICIN
     Indication: PROPHYLACTIC CHEMOTHERAPY
     Dosage: 35 MG/M2 THREE TIMES DURING A FOUR-WEEK PERIOD
  2. CARBOPLATIN. [Suspect]
     Active Substance: CARBOPLATIN
     Indication: SYNOVIAL SARCOMA
     Dosage: UNK
  3. CISPLATIN. [Suspect]
     Active Substance: CISPLATIN
     Indication: SYNOVIAL SARCOMA
  4. IRINOTECAN [Suspect]
     Active Substance: IRINOTECAN
     Indication: SYNOVIAL SARCOMA
     Dosage: UNK
  5. ETOPOSIDE. [Suspect]
     Active Substance: ETOPOSIDE
     Indication: SYNOVIAL SARCOMA
     Dosage: UNK

REACTIONS (6)
  - Synovial sarcoma [Fatal]
  - Disease recurrence [Fatal]
  - Disease progression [Unknown]
  - Drug ineffective [Unknown]
  - Cardiac tamponade [Recovered/Resolved]
  - Thrombocytopenia [Unknown]
